FAERS Safety Report 6395512-8 (Version None)
Quarter: 2009Q4

REPORT INFORMATION
  Report Type: 
  Country: None (occurrence: None)
  Receive Date: 20091007
  Receipt Date: 20090929
  Transmission Date: 20100525
  Serious: Yes (Other)
  Sender: FDA-Public Use
  Company Number: 2009S1000247

PATIENT
  Sex: Female

DRUGS (2)
  1. SORIATANE [Suspect]
     Indication: KERATOSIS FOLLICULAR
     Dosage: 25 MG;QD;PO
     Route: 048
     Dates: start: 19990801, end: 20080101
  2. DEPO-PROVERA /00115201/ [Concomitant]

REACTIONS (4)
  - ABORTION SPONTANEOUS [None]
  - DRUG EXPOSURE DURING PREGNANCY [None]
  - OFF LABEL USE [None]
  - PREGNANCY WITH INJECTABLE CONTRACEPTIVE [None]
